FAERS Safety Report 8042510-4 (Version None)
Quarter: 2012Q1

REPORT INFORMATION
  Report Type: 
  Country: None (occurrence: None)
  Receive Date: 20120112
  Receipt Date: 20120103
  Transmission Date: 20120608
  Serious: Yes (Life-Threatening, Hospitalization)
  Sender: FDA-Public Use
  Company Number: US-SHIONOGI, INC-2011000218

PATIENT

DRUGS (6)
  1. CLONIDINE [Concomitant]
     Dosage: UNK
     Dates: end: 20111020
  2. SEROQUEL XR [Suspect]
     Dosage: UNK
     Dates: start: 20111020, end: 20111107
  3. XANAX [Concomitant]
     Dosage: UNK
     Dates: end: 20111020
  4. SEROQUEL [Concomitant]
     Dosage: UNK
     Dates: end: 20111020
  5. KAPVAY [Suspect]
     Indication: ATTENTION DEFICIT/HYPERACTIVITY DISORDER
     Dosage: UNK
     Dates: start: 20111020, end: 20111107
  6. XANAX XR [Suspect]
     Dosage: UNK
     Dates: start: 20111020, end: 20111107

REACTIONS (2)
  - ANAPHYLACTIC REACTION [None]
  - AGGRESSION [None]
